FAERS Safety Report 7230428-6 (Version None)
Quarter: 2011Q1

REPORT INFORMATION
  Report Type: 
  Country: None (occurrence: None)
  Receive Date: 20110118
  Receipt Date: 20101216
  Transmission Date: 20110831
  Serious: Yes (Other)
  Sender: FDA-Public Use
  Company Number: US-BAYER-201023214NA

PATIENT
  Sex: Female

DRUGS (7)
  1. LOVENOX [Concomitant]
  2. WARFARIN SODIUM [Concomitant]
     Dosage: 2 MG, UNK
  3. YAZ [Suspect]
     Route: 048
     Dates: start: 20070801
  4. YASMIN [Suspect]
     Indication: PRODUCT USED FOR UNKNOWN INDICATION
     Route: 048
     Dates: start: 20070801
  5. VITAMIN D [Concomitant]
     Dosage: 50000 IU, OW
     Route: 048
  6. TRIAMTERENE [Concomitant]
     Dosage: UNK UNK, OM
     Route: 048
  7. OCELLA [Suspect]
     Indication: PRODUCT USED FOR UNKNOWN INDICATION
     Route: 048
     Dates: start: 20070801

REACTIONS (1)
  - PULMONARY EMBOLISM [None]
